FAERS Safety Report 6882074-1 (Version None)
Quarter: 2010Q3

REPORT INFORMATION
  Report Type: 
  Country: None (occurrence: None)
  Receive Date: 20100729
  Receipt Date: 20100722
  Transmission Date: 20110219
  Serious: Yes (Death, Hospitalization)
  Sender: FDA-Public Use
  Company Number: US-SANOFI-AVENTIS-2010SA030084

PATIENT
  Age: 58 Year
  Sex: Male

DRUGS (17)
  1. TAXOTERE [Suspect]
     Indication: NON-SMALL CELL LUNG CANCER
     Route: 041
     Dates: start: 20100519, end: 20100519
  2. DEXAMETHASONE [Concomitant]
     Indication: PREMEDICATION
     Route: 048
     Dates: start: 20100518, end: 20100518
  3. DEXAMETHASONE [Concomitant]
     Route: 042
     Dates: start: 20100519, end: 20100519
  4. DIPHENHYDRAMINE HYDROCHLORIDE [Concomitant]
     Indication: PREMEDICATION
     Route: 065
  5. ALL OTHER THERAPEUTIC PRODUCTS [Concomitant]
     Indication: PREMEDICATION
  6. FOLIC ACID [Concomitant]
  7. LASIX [Concomitant]
  8. THORAZINE [Concomitant]
  9. ZAROXOLYN [Concomitant]
  10. NITRO-BID [Concomitant]
  11. COMPAZINE [Concomitant]
  12. COREG [Concomitant]
  13. ATORVASTATIN [Concomitant]
  14. SYNTHROID [Concomitant]
  15. SLO-MAG [Concomitant]
  16. K-TAB [Concomitant]
  17. PROVENTIL [Concomitant]

REACTIONS (1)
  - CONVULSION [None]
